FAERS Safety Report 13542800 (Version 4)
Quarter: 2017Q3

REPORT INFORMATION
  Report Type: Spontaneous
  Country: DE (occurrence: DE)
  Receive Date: 20170512
  Receipt Date: 20170818
  Transmission Date: 20171127
  Serious: Yes (Hospitalization)
  Sender: FDA-Public Use
  Company Number: DE-BAUSCH-BL-2017-012409

PATIENT
  Age: 5 Year
  Sex: Male
  Weight: 22 kg

DRUGS (1)
  1. ZYKLOLAT EDO [Suspect]
     Active Substance: CYCLOPENTOLATE
     Indication: PRODUCT USED FOR UNKNOWN INDICATION
     Route: 047
     Dates: start: 20170424

REACTIONS (12)
  - Tachycardia [Recovered/Resolved]
  - Mydriasis [Recovered/Resolved]
  - Restlessness [Recovered/Resolved]
  - Disinhibition [Recovered/Resolved]
  - Muscle twitching [Recovered/Resolved]
  - Hallucination [Recovered/Resolved]
  - Somnolence [Not Recovered/Not Resolved]
  - Fatigue [Recovered/Resolved]
  - Abnormal dreams [Recovered/Resolved]
  - Agitation [Not Recovered/Not Resolved]
  - Euphoric mood [Recovered/Resolved]
  - Poor quality sleep [Recovered/Resolved]

NARRATIVE: CASE EVENT DATE: 2017
